FAERS Safety Report 7961200-7 (Version None)
Quarter: 2011Q4

REPORT INFORMATION
  Report Type: 
  Country: None (occurrence: None)
  Receive Date: 20111207
  Receipt Date: 20111130
  Transmission Date: 20120403
  Serious: Yes (Hospitalization)
  Sender: FDA-Public Use
  Company Number: JP-JNJFOC-20111108432

PATIENT
  Age: 78 Year
  Sex: Female

DRUGS (3)
  1. PRADAXA [Suspect]
     Indication: ATRIAL FIBRILLATION
     Dosage: 1 PER 1 DAY
     Route: 048
     Dates: start: 20110912, end: 20111115
  2. DIGOXIN [Concomitant]
     Indication: ATRIAL FIBRILLATION
     Dosage: 5 PER 1 DAY
     Route: 048
     Dates: start: 20110912
  3. TRAMADOL HYDROCHLORIDE/ACETAMINOPHEN [Suspect]
     Indication: PRODUCT USED FOR UNKNOWN INDICATION
     Dosage: 1 DF 1 PER 1 DAY
     Route: 048
     Dates: start: 20110912, end: 20111116

REACTIONS (1)
  - PNEUMONIA [None]
